FAERS Safety Report 25460811 (Version 1)
Quarter: 2025Q2

REPORT INFORMATION
  Report Type: Spontaneous
  Country: US (occurrence: None)
  Receive Date: 20250618
  Receipt Date: 20250618
  Transmission Date: 20250716
  Serious: Yes (Disabling)
  Sender: FDA-CTU
  Company Number: None

PATIENT
  Age: 59 Year
  Sex: Female

DRUGS (4)
  1. BUPROPION [Suspect]
     Active Substance: BUPROPION
     Indication: Depression
  2. FEXOFENADINE [Concomitant]
     Active Substance: FEXOFENADINE HYDROCHLORIDE
  3. BUSPAR [Concomitant]
     Active Substance: BUSPIRONE HYDROCHLORIDE
  4. CLONAZEPAM [Concomitant]
     Active Substance: CLONAZEPAM

REACTIONS (12)
  - Akathisia [None]
  - Withdrawal syndrome [None]
  - Agoraphobia [None]
  - Cognitive disorder [None]
  - Memory impairment [None]
  - Anxiety [None]
  - Insomnia [None]
  - Crying [None]
  - Hyperacusis [None]
  - Photophobia [None]
  - Loss of proprioception [None]
  - Impaired work ability [None]
